FAERS Safety Report 9365631 (Version 1)
Quarter: 2013Q2

REPORT INFORMATION
  Report Type: Spontaneous
  Country: US (occurrence: None)
  Receive Date: 20130624
  Receipt Date: 20130624
  Transmission Date: 20140414
  Serious: No
  Sender: FDA-Public Use
  Company Number: None

PATIENT
  Age: 83 Year
  Sex: Female
  Weight: 68.04 kg

DRUGS (2)
  1. NITROFUR [Suspect]
     Indication: URINARY TRACT INFECTION
     Dates: start: 20130618, end: 20130620
  2. NITROFUR-MACR [Concomitant]

REACTIONS (11)
  - Abdominal discomfort [None]
  - Abdominal pain upper [None]
  - Nausea [None]
  - Vomiting [None]
  - Decreased appetite [None]
  - Pyrexia [None]
  - Chills [None]
  - Asthenia [None]
  - Fatigue [None]
  - Dyspnoea [None]
  - Chromaturia [None]
